FAERS Safety Report 14070050 (Version 3)
Quarter: 2017Q4

REPORT INFORMATION
  Report Type: Report from Study
  Country: US (occurrence: US)
  Receive Date: 20171011
  Receipt Date: 20171114
  Transmission Date: 20180321
  Serious: No
  Sender: FDA-Public Use
  Company Number: PHEH2017US031803

PATIENT
  Age: 77 Year
  Sex: Male

DRUGS (3)
  1. COSENTYX [Suspect]
     Active Substance: SECUKINUMAB
     Indication: PSORIATIC ARTHROPATHY
     Dosage: 300 MG, QMO
     Route: 058
  2. COSENTYX [Suspect]
     Active Substance: SECUKINUMAB
     Indication: PSORIASIS
     Dosage: 300 MG, QW
     Route: 058
  3. COSENTYX [Suspect]
     Active Substance: SECUKINUMAB
     Indication: PSORIASIS

REACTIONS (8)
  - Lethargy [Recovered/Resolved]
  - Secretion discharge [Unknown]
  - Scab [Unknown]
  - Pruritus [Unknown]
  - Oral herpes [Unknown]
  - Depressed mood [Recovered/Resolved]
  - Rash [Unknown]
  - Erythema [Unknown]

NARRATIVE: CASE EVENT DATE: 20170907
